FAERS Safety Report 6397628-9 (Version None)
Quarter: 2009Q4

REPORT INFORMATION
  Report Type: 
  Country: None (occurrence: None)
  Receive Date: 20091012
  Receipt Date: 20090928
  Transmission Date: 20100525
  Serious: Yes (Other)
  Sender: FDA-Public Use
  Company Number: FR-MYLANLABS-2009S1016934

PATIENT
  Age: 53 Year
  Sex: Female

DRUGS (6)
  1. ATENOLOL [Suspect]
     Indication: PALPITATIONS
     Dosage: 50 MG/DAY
     Dates: start: 20070101
  2. ASPEGIC 1000 [Concomitant]
     Dosage: 250 MG/DAY
  3. FOSINOPRIL SODIUM [Concomitant]
     Dosage: 10 MG/DAY
  4. PRAVASTATIN [Concomitant]
     Dosage: 20 MG/DAY
  5. OMEPRAZOLE [Concomitant]
     Dosage: 20 MG/DAY
  6. RIVOTRIL [Concomitant]

REACTIONS (1)
  - HYPERKALAEMIA [None]
